FAERS Safety Report 18397581 (Version 2)
Quarter: 2020Q4

REPORT INFORMATION
  Report Type: Spontaneous
  Country: AR (occurrence: AR)
  Receive Date: 20201019
  Receipt Date: 20201102
  Transmission Date: 20210114
  Serious: Yes (Other)
  Sender: FDA-Public Use
  Company Number: NVSC2020AR274496

PATIENT
  Sex: Female

DRUGS (1)
  1. SANDIMMUN NEORAL [Suspect]
     Active Substance: CYCLOSPORINE
     Indication: NEPHROPATHY
     Dosage: 100 MG, Q12H
     Route: 065
     Dates: start: 20200916, end: 20200929

REACTIONS (3)
  - Neoplasm malignant [Unknown]
  - Renal disorder [Unknown]
  - Immunodeficiency [Unknown]
